FAERS Safety Report 8742774 (Version 4)
Quarter: 2012Q4

REPORT INFORMATION
  Report Type: 
  Country: US (occurrence: US)
  Receive Date: 20120824
  Receipt Date: 20121204
  Transmission Date: 20130627
  Serious: Yes (Disabling, Other)
  Sender: FDA-Public Use
  Company Number: US-PERRIGO-12US007034

PATIENT
  Age: 80 None
  Sex: Male
  Weight: 72.56 kg

DRUGS (14)
  1. NAPROXEN SODIUM [Suspect]
     Indication: NECK PAIN
     Dosage: 220 mg, bid
     Route: 048
     Dates: start: 20120715, end: 20120716
  2. NAPROXEN SODIUM [Suspect]
     Indication: BACK PAIN
  3. TERAZOSIN [Concomitant]
     Indication: PROSTATOMEGALY
     Dosage: 2 mg, qd
     Route: 048
     Dates: start: 2005
  4. PLAVIX [Concomitant]
     Indication: CARDIAC DISORDER
     Dosage: 75 mg, qd
     Route: 048
     Dates: start: 2002
  5. SIMVASTATIN [Concomitant]
     Indication: PRODUCT USED FOR UNKNOWN INDICATION
     Dosage: 40 mg, qd
     Route: 048
  6. CARVEDILOL [Concomitant]
     Indication: PRODUCT USED FOR UNKNOWN INDICATION
     Dosage: 25 mg, qd
     Route: 048
  7. CARVEDILOL [Concomitant]
     Dosage: 12.5 mg, bid
     Route: 048
  8. HUMALOG [Concomitant]
     Indication: PRODUCT USED FOR UNKNOWN INDICATION
     Dosage: 6 units, tid
     Route: 065
  9. LANTUS [Concomitant]
     Indication: PRODUCT USED FOR UNKNOWN INDICATION
     Dosage: 6 units, bid
     Route: 065
  10. BENAZEPRIL [Concomitant]
     Indication: PRODUCT USED FOR UNKNOWN INDICATION
     Dosage: 10 mg, qd
     Route: 048
  11. BENAZEPRIL [Concomitant]
     Dosage: 20 mg, bid
     Route: 048
  12. ZOLPIDEM [Concomitant]
     Indication: PRODUCT USED FOR UNKNOWN INDICATION
     Dosage: 5 mg, qd
     Route: 048
  13. FUROSEMIDE [Concomitant]
     Indication: PRODUCT USED FOR UNKNOWN INDICATION
     Dosage: 20 mg, qd, prn
     Route: 048
  14. COMBIGAN [Concomitant]
     Indication: GLAUCOMA
     Dosage: UNK, bid in both eyes
     Route: 047

REACTIONS (11)
  - Cerebral infarction [Unknown]
  - Visual acuity reduced [Recovering/Resolving]
  - Vision blurred [Not Recovered/Not Resolved]
  - Amnesia [Not Recovered/Not Resolved]
  - Eye swelling [Recovering/Resolving]
  - Dizziness [Unknown]
  - Angioedema [Unknown]
  - Eye pruritus [Unknown]
  - Hypersensitivity [Unknown]
  - Mobility decreased [None]
  - Impaired driving ability [None]
